FAERS Safety Report 9500909 (Version 1)
Quarter: 2013Q1

REPORT INFORMATION
  Report Type: Spontaneous
  Country: US (occurrence: None)
  Receive Date: 20130107
  Receipt Date: 20130107
  Transmission Date: 20140127
  Serious: No
  Sender: FDA-Public Use
  Company Number: PHEH2012US017461

PATIENT
  Age: 61 Year
  Sex: Female

DRUGS (7)
  1. GILENYA (FTY) CAPSULE, 0.5MG [Suspect]
     Indication: MULTIPLE SCLEROSIS
     Route: 048
     Dates: start: 20120810
  2. MULTIVITAMIN (VITAMINS NOS) TABLET [Concomitant]
  3. PROVERA (MEDROXYPROGESTERONE ACETATE) [Concomitant]
  4. PROTONIX (PANTOPRAZOLE) [Concomitant]
  5. ARMOUR THYROID (THYROID) [Concomitant]
  6. SYNTHROID (LEVOTHYROXINE SODIUM) TABLET [Concomitant]
  7. ESTRADIOL (ESTRADIOL) [Concomitant]

REACTIONS (2)
  - Visual impairment [None]
  - Fatigue [None]
